FAERS Safety Report 4796942-8 (Version None)
Quarter: 2005Q4

REPORT INFORMATION
  Report Type: 
  Country: None (occurrence: None)
  Receive Date: 20051011
  Receipt Date: 20051011
  Transmission Date: 20060501
  Serious: Yes (Other)
  Sender: FDA-Public Use
  Company Number: None

PATIENT
  Age: 38 Year
  Sex: Male
  Weight: 85.2762 kg

DRUGS (1)
  1. STRATTERA [Suspect]
     Indication: ATTENTION DEFICIT/HYPERACTIVITY DISORDER
     Dosage: 40 MG DAILY PO
     Route: 048
     Dates: start: 20040923, end: 20050301

REACTIONS (4)
  - BLOOD URINE PRESENT [None]
  - HYDROCELE [None]
  - PENILE DISCHARGE [None]
  - SCROTAL PAIN [None]
